FAERS Safety Report 17597175 (Version 1)
Quarter: 2020Q1

REPORT INFORMATION
  Report Type: Spontaneous
  Country: NL (occurrence: NL)
  Receive Date: 20200330
  Receipt Date: 20200330
  Transmission Date: 20200409
  Serious: Yes (Other)
  Sender: FDA-Public Use
  Company Number: NL-TEVA-2020-NL-1212433

PATIENT
  Age: 70 Year
  Sex: Male
  Weight: 81 kg

DRUGS (3)
  1. GREPID (CLOPIDOGREL) [Concomitant]
     Dosage: TABLET, 75 MG (MILLIGRAM)
  2. TRAMADOL. [Suspect]
     Active Substance: TRAMADOL
     Indication: BACK PAIN
     Dosage: 50 MG 3X DAILY, 3X DAILY, 1
     Route: 065
     Dates: start: 20200218
  3. EZETIMIB/SIMVASTATINE [Concomitant]
     Dosage: TABLET, 10/40 MG (MILLIGRAM)

REACTIONS (1)
  - Conjunctival haemorrhage [Not Recovered/Not Resolved]

NARRATIVE: CASE EVENT DATE: 20200227
